FAERS Safety Report 20151615 (Version 1)
Quarter: 2021Q4

REPORT INFORMATION
  Report Type: Spontaneous
  Country: US (occurrence: None)
  Receive Date: 20211203
  Receipt Date: 20211203
  Transmission Date: 20220303
  Serious: No
  Sender: FDA-Public Use
  Company Number: None

PATIENT
  Age: 22 Year
  Sex: Female

DRUGS (2)
  1. MONISTAT 7 [Suspect]
     Active Substance: MICONAZOLE NITRATE
     Indication: Fungal infection
     Dosage: OTHER QUANTITY : 7 APPLICATORS;?FREQUENCY : AT BEDTIME;?
     Route: 067
  2. CLARITIN [Concomitant]
     Active Substance: LORATADINE

REACTIONS (2)
  - Application site pain [None]
  - Application site pruritus [None]

NARRATIVE: CASE EVENT DATE: 20211202
